FAERS Safety Report 14568715 (Version 1)
Quarter: 2018Q1

REPORT INFORMATION
  Report Type: Report from Study
  Country: BR (occurrence: BR)
  Receive Date: 20180223
  Receipt Date: 20180223
  Transmission Date: 20180509
  Serious: Yes (Other)
  Sender: FDA-Public Use
  Company Number: PHHY2015BR136865

PATIENT
  Age: 33 Year
  Sex: Female
  Weight: 55 kg

DRUGS (2)
  1. EXJADE [Suspect]
     Active Substance: DEFERASIROX
     Indication: SICKLE CELL ANAEMIA
     Dosage: 3 DF, QD
     Route: 048
     Dates: start: 2014
  2. DESFERAL [Suspect]
     Active Substance: DEFEROXAMINE MESYLATE
     Indication: SICKLE CELL ANAEMIA
     Route: 065

REACTIONS (8)
  - Pain in extremity [Recovered/Resolved]
  - Somnolence [Unknown]
  - Sickle cell anaemia with crisis [Recovering/Resolving]
  - Asthenia [Unknown]
  - Malaise [Unknown]
  - Haemoglobin decreased [Unknown]
  - Oedema peripheral [Recovered/Resolved]
  - Haemoglobin increased [Recovering/Resolving]

NARRATIVE: CASE EVENT DATE: 201701
